FAERS Safety Report 23131184 (Version 4)
Quarter: 2024Q1

REPORT INFORMATION
  Report Type: Spontaneous
  Country: JP (occurrence: JP)
  Receive Date: 20231031
  Receipt Date: 20240313
  Transmission Date: 20240409
  Serious: Yes (Hospitalization, Other)
  Sender: FDA-Public Use
  Company Number: JP-GLAXOSMITHKLINE-JP2023JPN075685

PATIENT

DRUGS (19)
  1. DAPRODUSTAT [Suspect]
     Active Substance: DAPRODUSTAT
     Indication: Nephrogenic anaemia
     Dosage: 4 MG
     Route: 048
     Dates: start: 20230127, end: 20230413
  2. DAPRODUSTAT [Suspect]
     Active Substance: DAPRODUSTAT
     Dosage: 2 MG
     Route: 048
     Dates: start: 20230414, end: 20230511
  3. DAPRODUSTAT [Suspect]
     Active Substance: DAPRODUSTAT
     Dosage: 1 MG, 1D, AFTER BREAKFAST
     Dates: start: 20230512, end: 20230523
  4. FUROSEMIDE [Concomitant]
     Active Substance: FUROSEMIDE
     Dosage: 40 MG, 1D
     Dates: start: 20190910
  5. TRICHLORMETHIAZIDE [Concomitant]
     Active Substance: TRICHLORMETHIAZIDE
     Dosage: 2 MG, 1D
  6. FEBUXOSTAT [Concomitant]
     Active Substance: FEBUXOSTAT
     Dosage: 10 MG, 1D
  7. AMLODIPINE BESYLATE [Concomitant]
     Active Substance: AMLODIPINE BESYLATE
     Dosage: 5 MG, 1D, AFTER BREAKFAST
     Dates: start: 20190910
  8. SPIRONOLACTONE [Concomitant]
     Active Substance: SPIRONOLACTONE
     Dosage: 25 MG, 1D
  9. AZOSEMIDE [Concomitant]
     Active Substance: AZOSEMIDE
     Dosage: 30 MG, 1D
  10. FERROUS FUMARATE [Concomitant]
     Active Substance: FERROUS FUMARATE
     Dosage: 100 MG, 1D
  11. KETOPROFEN [Concomitant]
     Active Substance: KETOPROFEN
     Dosage: 40 MG, 1D ON THE BACK
     Route: 061
  12. BETAMETHASONE [Concomitant]
     Active Substance: BETAMETHASONE\BETAMETHASONE DIPROPIONATE
     Dosage: UNK
     Route: 061
  13. GENTAMICIN SULFATE [Concomitant]
     Active Substance: GENTAMICIN SULFATE
     Dosage: UNK
     Route: 061
  14. TRICHLORMETHIAZIDE [Concomitant]
     Active Substance: TRICHLORMETHIAZIDE
     Dosage: 2 MG
     Dates: start: 20210426, end: 20230608
  15. FEBUXOSTAT [Concomitant]
     Active Substance: FEBUXOSTAT
     Dosage: 10 MG
     Dates: start: 20220117, end: 20230608
  16. Ferrum [Concomitant]
     Dosage: 100 MG, 1D, AFTER BREAKFAST
     Dates: start: 20230225, end: 20230608
  17. SPIRONOLACTONE [Concomitant]
     Active Substance: SPIRONOLACTONE
     Dosage: 25 MG, 1D, AFTER BREAKFAST
     Dates: start: 20210426, end: 20230608
  18. PETROLATUM [Concomitant]
     Active Substance: PETROLATUM
     Dosage: UNK, BID
  19. DIART [Concomitant]
     Dosage: 30 MG, 1D, AFTER BREAKFAST
     Dates: start: 20230512

REACTIONS (14)
  - Deep vein thrombosis [Recovered/Resolved]
  - Colon cancer [Unknown]
  - Chronic kidney disease [Unknown]
  - Hypokalaemia [Unknown]
  - Oedema peripheral [Unknown]
  - Iron deficiency anaemia [Unknown]
  - Oedema due to renal disease [Unknown]
  - Eczema [Unknown]
  - Venous thrombosis [Unknown]
  - Gastrooesophageal reflux disease [Unknown]
  - Chronic gastritis [Unknown]
  - Haemorrhagic diathesis [Recovered/Resolved]
  - Coagulopathy [Unknown]
  - Occult blood [Unknown]

NARRATIVE: CASE EVENT DATE: 20230224
